FAERS Safety Report 4526534-7 (Version None)
Quarter: 2004Q4

REPORT INFORMATION
  Report Type: 
  Country: None (occurrence: None)
  Receive Date: 20041210
  Receipt Date: 20041202
  Transmission Date: 20050328
  Serious: Yes (Hospitalization)
  Sender: FDA-Public Use
  Company Number: 2004UW24744

PATIENT
  Age: 52 Year
  Sex: Male
  Weight: 57.152 kg

DRUGS (3)
  1. PRILOSEC [Suspect]
     Indication: GASTROOESOPHAGEAL REFLUX DISEASE
     Dosage: 10 MG BID PO
     Route: 048
     Dates: start: 20040301
  2. KLONOPIN [Concomitant]
  3. SYNTHROID [Concomitant]

REACTIONS (2)
  - HEPATIC PAIN [None]
  - HEPATOTOXICITY [None]
